FAERS Safety Report 14130037 (Version 6)
Quarter: 2024Q4

REPORT INFORMATION
  Report Type: Spontaneous
  Country: US (occurrence: US)
  Receive Date: 20171026
  Receipt Date: 20241017
  Transmission Date: 20250115
  Serious: Yes (Death, Life-Threatening, Other)
  Sender: PFIZER
  Company Number: US-MLMSERVICE-20171018-0926158-1

PATIENT
  Age: 48 Year
  Sex: Male

DRUGS (13)
  1. FLUCONAZOLE [Suspect]
     Active Substance: FLUCONAZOLE
     Indication: Antifungal prophylaxis
     Dosage: UNK
  2. VORICONAZOLE [Suspect]
     Active Substance: VORICONAZOLE
     Indication: Bronchopulmonary aspergillosis
     Dosage: UNK
     Route: 048
  3. MICAFUNGIN [Suspect]
     Active Substance: MICAFUNGIN SODIUM
     Indication: Encephalitis
     Dosage: 150 MG, DAILY
  4. TERBINAFINE [Suspect]
     Active Substance: TERBINAFINE\TERBINAFINE HYDROCHLORIDE
     Indication: Encephalitis
     Dosage: 1000 MG, 2X/DAY
     Route: 048
  5. AMPHOTERICIN B [Suspect]
     Active Substance: AMPHOTERICIN B
     Indication: Encephalitis
     Dosage: 5 MG/KG, DAILY
  6. AMPHOTERICIN B [Suspect]
     Active Substance: AMPHOTERICIN B
     Dosage: 7.5 MG/KG, DAILY
  7. BORTEZOMIB [Concomitant]
     Active Substance: BORTEZOMIB
     Indication: Prophylaxis against graft versus host disease
     Dosage: UNK
  8. METHOTREXATE [Concomitant]
     Active Substance: METHOTREXATE
     Indication: Prophylaxis against graft versus host disease
     Dosage: UNK
  9. TACROLIMUS [Concomitant]
     Active Substance: TACROLIMUS
     Indication: Prophylaxis against graft versus host disease
     Dosage: UNK
  10. TACROLIMUS [Concomitant]
     Active Substance: TACROLIMUS
     Indication: Graft versus host disease
  11. INFLIXIMAB [Concomitant]
     Active Substance: INFLIXIMAB
     Indication: Graft versus host disease
     Dosage: UNK
  12. MYCOPHENOLIC ACID [Concomitant]
     Active Substance: MYCOPHENOLIC ACID
     Indication: Graft versus host disease
     Dosage: UNK
  13. MEROPENEM [Concomitant]
     Active Substance: MEROPENEM
     Indication: Encephalitis
     Dosage: UNK

REACTIONS (2)
  - Drug resistance [Fatal]
  - Drug ineffective [Fatal]
